FAERS Safety Report 5404365-3 (Version None)
Quarter: 2007Q3

REPORT INFORMATION
  Report Type: 
  Country: None (occurrence: None)
  Receive Date: 20070802
  Receipt Date: 20070723
  Transmission Date: 20080115
  Serious: Yes (Death, Hospitalization, Other)
  Sender: FDA-Public Use
  Company Number: US-BRISTOL-MYERS SQUIBB COMPANY-13856356

PATIENT
  Age: 69 Year
  Sex: Female

DRUGS (6)
  1. SINEMET CR [Suspect]
     Route: 048
  2. VIOXX [Suspect]
     Indication: PAIN IN EXTREMITY
     Route: 048
     Dates: start: 20000701, end: 20030301
  3. VIOXX [Suspect]
     Indication: BACK PAIN
     Route: 048
     Dates: start: 20000701, end: 20030301
  4. PREMARIN [Concomitant]
  5. ULTRAM [Concomitant]
  6. DICYCLOMINE HCL INJ [Concomitant]

REACTIONS (29)
  - ARTHRALGIA [None]
  - ATRIAL FIBRILLATION [None]
  - BACK PAIN [None]
  - CARDIAC FAILURE CONGESTIVE [None]
  - CARDIOGENIC SHOCK [None]
  - CEREBRAL ISCHAEMIA [None]
  - CEREBROVASCULAR ACCIDENT [None]
  - CHOREOATHETOSIS [None]
  - COMA [None]
  - DELUSION [None]
  - DEPRESSED LEVEL OF CONSCIOUSNESS [None]
  - ENCEPHALOPATHY [None]
  - FALL [None]
  - GENERAL PHYSICAL HEALTH DETERIORATION [None]
  - HYPERTENSION [None]
  - LETHARGY [None]
  - LIVER FUNCTION TEST ABNORMAL [None]
  - MAJOR DEPRESSION [None]
  - MITRAL VALVE STENOSIS [None]
  - MUSCULOSKELETAL PAIN [None]
  - MYOCARDIAL INFARCTION [None]
  - PAIN IN EXTREMITY [None]
  - PELVIC FRACTURE [None]
  - PELVIC PAIN [None]
  - RENAL FAILURE [None]
  - SPINAL COLUMN STENOSIS [None]
  - SUICIDAL IDEATION [None]
  - SYNCOPE [None]
  - THROMBOCYTOPENIA [None]
